FAERS Safety Report 23422579 (Version 1)
Quarter: 2024Q1

REPORT INFORMATION
  Report Type: Report from Study
  Country: US (occurrence: US)
  Receive Date: 20240119
  Receipt Date: 20240119
  Transmission Date: 20240409
  Serious: Yes (Hospitalization, Other)
  Sender: FDA-Public Use
  Company Number: US-ABBVIE-5509570

PATIENT
  Age: 82 Year
  Sex: Female

DRUGS (31)
  1. SYNTHROID [Suspect]
     Active Substance: LEVOTHYROXINE SODIUM
     Indication: Hypothyroidism
     Dosage: 175 MICROGRAM, STRENGTH: 175 MICROGRAM
     Route: 048
     Dates: start: 202303
  2. SYNTHROID [Suspect]
     Active Substance: LEVOTHYROXINE SODIUM
     Indication: Hypothyroidism
     Route: 048
  3. ALPRAZOLAMS [Concomitant]
     Indication: Product used for unknown indication
  4. TIKOSYN [Concomitant]
     Active Substance: DOFETILIDE
     Indication: Product used for unknown indication
  5. Citracal Calcium supplement [Concomitant]
     Indication: Osteopenia
     Dosage: 1 TAB Q AFTERNOON, 600MG
     Route: 048
  6. FAMOTIDINE [Concomitant]
     Active Substance: FAMOTIDINE
     Indication: Product used for unknown indication
  7. TRIAMCINOLONE [Concomitant]
     Active Substance: TRIAMCINOLONE
     Indication: Lichen sclerosus
     Dosage: 0.1 PERCENT
     Route: 065
  8. FINACAL [Concomitant]
     Indication: Product used for unknown indication
  9. MSM Metamucil [Concomitant]
     Indication: Colitis ulcerative
     Dosage: 5 CAPSULES BID
     Route: 048
  10. ANASTROZOLE [Concomitant]
     Active Substance: ANASTROZOLE
     Indication: Product used for unknown indication
     Dosage: 1 TAB Q 24 HOURS
     Route: 065
  11. PRAVACHOL [Concomitant]
     Active Substance: PRAVASTATIN SODIUM
     Indication: Product used for unknown indication
  12. WARFARIN [Concomitant]
     Active Substance: WARFARIN
     Indication: Product used for unknown indication
  13. PRAVACHOL [Concomitant]
     Active Substance: PRAVASTATIN SODIUM
     Indication: Blood cholesterol increased
     Dosage: 10MG
     Route: 048
  14. MOBIC [Concomitant]
     Active Substance: MELOXICAM
     Indication: Product used for unknown indication
  15. PROLIA [Concomitant]
     Active Substance: DENOSUMAB
     Indication: Product used for unknown indication
  16. CARDIZEM [Concomitant]
     Active Substance: DILTIAZEM HYDROCHLORIDE
     Indication: Product used for unknown indication
  17. COUMADIN [Concomitant]
     Active Substance: WARFARIN SODIUM
     Indication: Product used for unknown indication
  18. DILTIAZEM [Concomitant]
     Active Substance: DILTIAZEM
     Indication: Product used for unknown indication
  19. XANAX [Concomitant]
     Active Substance: ALPRAZOLAM
     Indication: Product used for unknown indication
  20. Mometasone sol [Concomitant]
     Indication: Dermatitis
     Dosage: PM EAR
  21. Jantoven (Coumadin) [Concomitant]
     Indication: Atrial fibrillation
     Dosage: 5MG
     Route: 048
  22. VITAMIN B COMPLEX [Concomitant]
     Active Substance: CYANOCOBALAMIN\DEXPANTHENOL\NIACINAMIDE\PYRIDOXINE HYDROCHLORIDE\RIBOFLAVIN 5^-PHOSPHATE SODIUM\THIA
     Indication: Product used for unknown indication
  23. COENZYME Q10 [Concomitant]
     Active Substance: DIETARY SUPPLEMENT\UBIDECARENONE
     Indication: Product used for unknown indication
     Dosage: 100MG
     Route: 048
  24. METOPROLOL [Concomitant]
     Active Substance: METOPROLOL
     Indication: Atrial fibrillation
     Dosage: 50MG
     Route: 048
  25. ANASTROZOLE [Concomitant]
     Active Substance: ANASTROZOLE
     Indication: Hormone receptor positive breast cancer
  26. Culturelle probiotic for digestive [Concomitant]
     Indication: Product used for unknown indication
     Route: 065
  27. MOBIC [Concomitant]
     Active Substance: MELOXICAM
     Indication: Osteoarthritis
     Dosage: 7.5 MG (MELOXICAM--GENERIC FORM)
  28. OMEGA 3 [Concomitant]
     Active Substance: CAPSAICIN
     Indication: Cardiac disorder
     Dosage: 1 CAP QD PM
     Route: 048
  29. CHONDROITIN SULFATE (BOVINE)\GLUCOSAMINE HYDROCHLORIDE [Concomitant]
     Active Substance: CHONDROITIN SULFATE (BOVINE)\GLUCOSAMINE HYDROCHLORIDE
     Indication: Bone disorder
     Route: 048
  30. FINACEA [Concomitant]
     Active Substance: AZELAIC ACID
     Indication: Rosacea
     Route: 065
  31. BALSALAZIDE [Concomitant]
     Active Substance: BALSALAZIDE
     Indication: Product used for unknown indication
     Route: 048

REACTIONS (10)
  - Supraventricular tachycardia [Recovered/Resolved]
  - Heart rate abnormal [Unknown]
  - Tachycardia [Not Recovered/Not Resolved]
  - Cardioversion [Unknown]
  - Weight decreased [Unknown]
  - Blood thyroid stimulating hormone decreased [Unknown]
  - Overdose [Unknown]
  - Breast cancer [Unknown]
  - Atrial fibrillation [Unknown]
  - Mitral valve prolapse [Unknown]

NARRATIVE: CASE EVENT DATE: 20220101
